FAERS Safety Report 10900184 (Version 1)
Quarter: 2015Q1

REPORT INFORMATION
  Report Type: Spontaneous
  Country: ET (occurrence: ET)
  Receive Date: 20150310
  Receipt Date: 20150310
  Transmission Date: 20150721
  Serious: Yes (Hospitalization)
  Sender: FDA-Public Use
  Company Number: ET-AUROBINDO-AUR-APL-2015-01786

PATIENT
  Sex: Male

DRUGS (4)
  1. AMPICILLIN INJECTION [Suspect]
     Active Substance: AMPICILLIN
     Indication: NEONATAL ASPIRATION
     Dosage: UNK
     Route: 042
  2. AMPICILLIN INJECTION [Suspect]
     Active Substance: AMPICILLIN
     Indication: PNEUMONIA
  3. GENTAMYCIN                         /00047101/ [Suspect]
     Active Substance: GENTAMICIN
     Indication: NEONATAL ASPIRATION
     Dosage: UNK
     Route: 065
  4. GENTAMYCIN                         /00047101/ [Suspect]
     Active Substance: GENTAMICIN
     Indication: PNEUMONIA

REACTIONS (1)
  - Drug ineffective [Unknown]
